FAERS Safety Report 10240521 (Version 1)
Quarter: 2014Q2

REPORT INFORMATION
  Report Type: Spontaneous
  Country: US (occurrence: US)
  Receive Date: 20140617
  Receipt Date: 20140617
  Transmission Date: 20141212
  Serious: Yes (Other)
  Sender: FDA-Public Use
  Company Number: US-BRISTOL-MYERS SQUIBB COMPANY-20965828

PATIENT
  Age: 72 Year
  Sex: Male

DRUGS (1)
  1. BYDUREON 2MG VIAL + SYRINGE [Suspect]
     Dosage: TOTAL-2 INJECTIONS

REACTIONS (2)
  - Psychotic disorder [Recovered/Resolved]
  - Hallucination [Recovered/Resolved]
